FAERS Safety Report 4998600-3 (Version None)
Quarter: 2006Q2

REPORT INFORMATION
  Report Type: 
  Country: None (occurrence: None)
  Receive Date: 20060508
  Receipt Date: 20060427
  Transmission Date: 20061013
  Serious: Yes (Death, Hospitalization)
  Sender: FDA-Public Use
  Company Number: 2006-01019

PATIENT
  Sex: Male

DRUGS (3)
  1. VELCADE [Suspect]
     Dosage: SEE IMAGE
     Route: 042
     Dates: start: 20051125, end: 20051202
  2. VELCADE [Suspect]
     Dosage: SEE IMAGE
     Route: 042
     Dates: end: 20060131
  3. DEXAMETHASONE [Concomitant]

REACTIONS (3)
  - CARDIAC FAILURE ACUTE [None]
  - MYOCARDIAL INFARCTION [None]
  - PULMONARY OEDEMA [None]
